FAERS Safety Report 13571685 (Version 1)
Quarter: 2017Q2

REPORT INFORMATION
  Report Type: Spontaneous
  Country: US (occurrence: US)
  Receive Date: 20170522
  Receipt Date: 20170522
  Transmission Date: 20170830
  Serious: Yes (Hospitalization)
  Sender: FDA-Public Use
  Company Number: None

PATIENT
  Age: 69 Year
  Sex: Male
  Weight: 70 kg

DRUGS (1)
  1. CLINDAMYCIN. [Suspect]
     Active Substance: CLINDAMYCIN
     Indication: INFECTION PROPHYLAXIS
     Route: 042
     Dates: start: 20160309, end: 20160309

REACTIONS (5)
  - Dyspnoea [None]
  - Confusional state [None]
  - Pyrexia [None]
  - Rash generalised [None]
  - Chills [None]

NARRATIVE: CASE EVENT DATE: 20160310
